FAERS Safety Report 10275473 (Version 2)
Quarter: 2014Q3

REPORT INFORMATION
  Report Type: Spontaneous
  Country: US (occurrence: US)
  Receive Date: 20140703
  Receipt Date: 20140715
  Transmission Date: 20150326
  Serious: Yes (Hospitalization)
  Sender: FDA-Public Use
  Company Number: US-009507513-1406USA010471

PATIENT
  Sex: Female

DRUGS (3)
  1. DULERA [Suspect]
     Active Substance: FORMOTEROL FUMARATE DIHYDRATE\MOMETASONE FUROATE
     Indication: EMPHYSEMA
     Dosage: 200/5 MCG, 2 PUFFS TWICE DAILY
     Route: 055
     Dates: start: 2010
  2. SPIRIVA [Concomitant]
     Active Substance: TIOTROPIUM BROMIDE MONOHYDRATE
     Dosage: UNK
  3. DALIRESP [Concomitant]
     Active Substance: ROFLUMILAST
     Dosage: UNK

REACTIONS (2)
  - Therapeutic response decreased [Not Recovered/Not Resolved]
  - Bronchitis [Not Recovered/Not Resolved]
